FAERS Safety Report 6318627-9 (Version None)
Quarter: 2009Q3

REPORT INFORMATION
  Report Type: 
  Country: None (occurrence: None)
  Receive Date: 20090819
  Receipt Date: 20090810
  Transmission Date: 20100115
  Serious: Yes (Life-Threatening)
  Sender: FDA-Public Use
  Company Number: URSO-2009-104

PATIENT
  Age: 50 Year
  Sex: Female

DRUGS (2)
  1. URSO 100MG TABLETS (URSODEOXYCHOLIC ACID) [Suspect]
     Indication: HEPATIC FUNCTION ABNORMAL
     Dosage: 300MG , ORAL
     Route: 048
     Dates: start: 20090701, end: 20090731
  2. LOXONIN (LOXOPROFEN SODIUM) [Suspect]
     Indication: PYREXIA
     Dosage: 2. 60MG PRN

REACTIONS (2)
  - NO THERAPEUTIC RESPONSE [None]
  - RENAL IMPAIRMENT [None]
